FAERS Safety Report 10232724 (Version 2)
Quarter: 2015Q1

REPORT INFORMATION
  Report Type: Other
  Country: GB (occurrence: GB)
  Receive Date: 20140612
  Receipt Date: 20150310
  Transmission Date: 20150720
  Serious: Yes (Death, Other)
  Sender: FDA-Public Use
  Company Number: GB-SUN PHARMACEUTICAL INDUSTRIES LTD-2014SUN01290

PATIENT
  Age: 55 Year
  Sex: Male
  Weight: 70 kg

DRUGS (5)
  1. GEMCITABINE [Suspect]
     Active Substance: GEMCITABINE\GEMCITABINE HYDROCHLORIDE
     Indication: PANCREATIC CARCINOMA METASTATIC
     Dosage: 1000
     Route: 041
     Dates: start: 201201
  2. GEMCITABINE [Suspect]
     Active Substance: GEMCITABINE\GEMCITABINE HYDROCHLORIDE
     Indication: METASTASES TO LUNG
     Dosage: UNK
     Route: 065
  3. CAPECITABINE. [Concomitant]
     Active Substance: CAPECITABINE
     Indication: PANCREATIC CARCINOMA METASTATIC
     Route: 065
     Dates: start: 201208, end: 201209
  4. ABRAXANE [Suspect]
     Active Substance: PACLITAXEL
     Indication: METASTASES TO LUNG
     Dosage: UNK
     Route: 065
  5. ABRAXANE [Suspect]
     Active Substance: PACLITAXEL
     Indication: PANCREATIC CARCINOMA METASTATIC
     Dosage: 125
     Route: 041
     Dates: start: 201201

REACTIONS (11)
  - Pancreatic carcinoma [Not Recovered/Not Resolved]
  - Neuropathy peripheral [Unknown]
  - Malignant neoplasm progression [None]
  - Nausea [Unknown]
  - Performance status decreased [None]
  - Fatigue [Unknown]
  - Pancreatic carcinoma metastatic [None]
  - Anaemia [Unknown]
  - Death [Fatal]
  - Neutropenia [Unknown]
  - Metastases to peritoneum [None]

NARRATIVE: CASE EVENT DATE: 201211
